FAERS Safety Report 5112605-3 (Version None)
Quarter: 2006Q3

REPORT INFORMATION
  Report Type: 
  Country: None (occurrence: None)
  Receive Date: 20060922
  Receipt Date: 20060830
  Transmission Date: 20061208
  Serious: Yes (Life-Threatening)
  Sender: FDA-Public Use
  Company Number: JP-ROCHE-461830

PATIENT
  Age: 93 Year
  Sex: Male
  Weight: 55 kg

DRUGS (2)
  1. ROCEPHIN [Suspect]
     Indication: PNEUMONIA
     Route: 041
     Dates: start: 20060805, end: 20060813
  2. CLINDAMYCIN HCL [Concomitant]
     Route: 041
     Dates: start: 20060805, end: 20060813

REACTIONS (2)
  - INJECTION SITE HAEMORRHAGE [None]
  - THROMBOTIC THROMBOCYTOPENIC PURPURA [None]
